FAERS Safety Report 5742486-6 (Version None)
Quarter: 2008Q2

REPORT INFORMATION
  Report Type: 
  Country: None (occurrence: None)
  Receive Date: 20080515
  Receipt Date: 20080505
  Transmission Date: 20081010
  Serious: Yes (Hospitalization, Other)
  Sender: FDA-Public Use
  Company Number: 20080093 /

PATIENT
  Age: 22 Year
  Sex: Female

DRUGS (3)
  1. VENOFER [Suspect]
     Indication: IRON DEFICIENCY ANAEMIA
     Dosage: 100 MG, BOLUS INTRAVENOUS
     Route: 040
     Dates: start: 20080328, end: 20080328
  2. ACETAMINOPHEN [Concomitant]
  3. LORNOXICAM [Concomitant]

REACTIONS (8)
  - ANOREXIA [None]
  - DIZZINESS [None]
  - FACIAL PARESIS [None]
  - OSMOPHOBIA [None]
  - PHONOPHOBIA [None]
  - PHOTOPHOBIA [None]
  - POST LUMBAR PUNCTURE SYNDROME [None]
  - VIRAL INFECTION [None]
